FAERS Safety Report 18288909 (Version 2)
Quarter: 2022Q4

REPORT INFORMATION
  Report Type: Spontaneous
  Country: DE (occurrence: DE)
  Receive Date: 20200921
  Receipt Date: 20221020
  Transmission Date: 20230113
  Serious: Yes (Hospitalization, Other)
  Sender: FDA-Public Use
  Company Number: DE-ADRED-05267-01

PATIENT
  Age: 72 Year
  Sex: Male
  Weight: 93 kg

DRUGS (2)
  1. PANTOPRAZOLE [Suspect]
     Active Substance: PANTOPRAZOLE
     Dosage: 20 MILLIGRAM, QD
     Route: 048
  2. HYDROCHLOROTHIAZIDE\RAMIPRIL [Suspect]
     Active Substance: HYDROCHLOROTHIAZIDE\RAMIPRIL
     Dosage: 25/5 MILLIGRAM, QD
     Route: 048

REACTIONS (9)
  - General physical health deterioration [Unknown]
  - Pain [Unknown]
  - Abdominal pain [Unknown]
  - Abdominal pain upper [Unknown]
  - Cholecystitis acute [Unknown]
  - Aspartate aminotransferase increased [Unknown]
  - Alanine aminotransferase increased [Unknown]
  - Glomerular filtration rate decreased [Unknown]
  - Gamma-glutamyltransferase increased [Unknown]
